FAERS Safety Report 26081067 (Version 1)
Quarter: 2025Q4

REPORT INFORMATION
  Report Type: Spontaneous
  Country: MK (occurrence: MK)
  Receive Date: 20251124
  Receipt Date: 20251124
  Transmission Date: 20260118
  Serious: Yes (Other)
  Sender: ROCHE
  Company Number: MK-ROCHE-10000439367

PATIENT
  Age: 53 Year

DRUGS (3)
  1. COTELLIC [Suspect]
     Active Substance: COBIMETINIB FUMARATE
     Indication: Product used for unknown indication
     Dosage: 3 TABLETS X 1 TIME PER DAY FOR 21 CONSECUTIVE DAYS (FROM DAY 1 TO DAY 21 OF THE TREATMENT CYCLE), FO
     Route: 065
     Dates: start: 202104
  2. VEMURAFENIB [Suspect]
     Active Substance: VEMURAFENIB
     Indication: Product used for unknown indication
     Route: 065
     Dates: start: 202104
  3. PEMBROLIZUMAB [Concomitant]
     Active Substance: PEMBROLIZUMAB
     Indication: Product used for unknown indication
     Dosage: SECOND-LINE MONOTHERAPY?26-NOV-2024: 14TH AND FINAL CYCLE
     Dates: start: 20240220

REACTIONS (5)
  - Dermatitis [Recovered/Resolved]
  - Skin lesion [Unknown]
  - Tumour marker increased [Unknown]
  - Blood lactate dehydrogenase increased [Unknown]
  - Metastases to muscle [Unknown]
